FAERS Safety Report 9414534 (Version 2)
Quarter: 2013Q3

REPORT INFORMATION
  Report Type: Spontaneous
  Country: US (occurrence: US)
  Receive Date: 20130723
  Receipt Date: 20130912
  Transmission Date: 20140515
  Serious: Yes (Death, Hospitalization, Other)
  Sender: FDA-Public Use
  Company Number: US-CELGENEUS-163-POMAL-13072321

PATIENT
  Age: 47 Year
  Sex: Male
  Weight: 67.9 kg

DRUGS (22)
  1. BIAXIN [Concomitant]
     Indication: PRODUCT USED FOR UNKNOWN INDICATION
     Dosage: 500 MILLIGRAM
     Route: 048
     Dates: start: 201302
  2. POMALYST [Suspect]
     Indication: PLASMA CELL MYELOMA
     Route: 065
     Dates: start: 20130320, end: 20130405
  3. DENOSUMAB [Concomitant]
     Indication: PLASMA CELL MYELOMA
     Route: 065
  4. ACYCLOVIR [Concomitant]
     Indication: INFECTION PROPHYLAXIS
     Dosage: 200 MILLIGRAM
     Route: 065
  5. DECADRON [Concomitant]
     Indication: PRODUCT USED FOR UNKNOWN INDICATION
     Route: 048
  6. OXYCONTIN [Concomitant]
     Indication: PAIN
     Route: 065
  7. ATIVAN [Concomitant]
     Indication: ANXIETY
     Route: 065
  8. ZOFRAN [Concomitant]
     Indication: NAUSEA
     Route: 065
  9. OXYCODONE [Concomitant]
     Indication: PAIN
     Route: 048
  10. MAGNESIUM [Concomitant]
     Indication: HYPOMAGNESAEMIA
     Dosage: 800 MILLIGRAM
     Route: 048
  11. POTASSIUM CHLORIDE [Concomitant]
     Indication: HYPOKALAEMIA
     Dosage: 20 MILLIEQUIVALENTS
     Route: 048
  12. TUMS [Concomitant]
     Indication: PRODUCT USED FOR UNKNOWN INDICATION
     Dosage: 3000 MILLIGRAM
     Route: 048
  13. COLACE [Concomitant]
     Indication: PRODUCT USED FOR UNKNOWN INDICATION
     Dosage: 200 MILLIGRAM
     Route: 048
  14. PROCRIT [Concomitant]
     Indication: PRODUCT USED FOR UNKNOWN INDICATION
     Dosage: 20000 UNITS
     Route: 065
  15. NEUPOGEN [Concomitant]
     Indication: PRODUCT USED FOR UNKNOWN INDICATION
     Dosage: 300 MICROGRAM
     Route: 065
  16. LASIX [Concomitant]
     Indication: PRODUCT USED FOR UNKNOWN INDICATION
     Dosage: 80 MICROGRAM
     Route: 048
  17. DULCOLAX [Concomitant]
     Indication: CONSTIPATION
     Route: 048
  18. LEVAQUIN [Concomitant]
     Indication: INFECTION PROPHYLAXIS
     Route: 048
  19. SENOKOT [Concomitant]
     Indication: PRODUCT USED FOR UNKNOWN INDICATION
     Route: 065
  20. PREDNISONE [Concomitant]
     Indication: PRODUCT USED FOR UNKNOWN INDICATION
     Route: 065
     Dates: start: 201302, end: 201303
  21. CYTOXAN [Concomitant]
     Indication: PRODUCT USED FOR UNKNOWN INDICATION
     Route: 065
     Dates: start: 201302, end: 201303
  22. CALCITONIN [Concomitant]
     Indication: PRODUCT USED FOR UNKNOWN INDICATION
     Route: 065
     Dates: start: 201302, end: 201303

REACTIONS (4)
  - Plasma cell myeloma [Fatal]
  - Pancytopenia [Not Recovered/Not Resolved]
  - Hyperbilirubinaemia [Not Recovered/Not Resolved]
  - Renal failure [Not Recovered/Not Resolved]
